FAERS Safety Report 6912417-1 (Version None)
Quarter: 2010Q3

REPORT INFORMATION
  Report Type: 
  Country: None (occurrence: None)
  Receive Date: 20100806
  Receipt Date: 20080415
  Transmission Date: 20110219
  Serious: No
  Sender: FDA-Public Use
  Company Number: US-PFIZER INC-2008034546

PATIENT
  Sex: Male

DRUGS (3)
  1. DETROL LA [Suspect]
     Indication: POLLAKIURIA
  2. MULTI-VITAMINS [Interacting]
  3. FISH OIL [Interacting]

REACTIONS (3)
  - DRUG INTERACTION [None]
  - INSOMNIA [None]
  - POLLAKIURIA [None]
